FAERS Safety Report 9130987 (Version 1)
Quarter: 2013Q1

REPORT INFORMATION
  Report Type: Other
  Country: IN (occurrence: IN)
  Receive Date: 20130301
  Receipt Date: 20130301
  Transmission Date: 20140127
  Serious: Yes (Hospitalization)
  Sender: FDA-Public Use
  Company Number: IN-BRISTOL-MYERS SQUIBB COMPANY-17402660

PATIENT
  Age: 40 Year
  Sex: Male

DRUGS (3)
  1. STAVUDINE [Suspect]
     Indication: HIV INFECTION
  2. LAMIVUDINE [Suspect]
     Indication: HIV INFECTION
  3. NEVIRAPINE [Suspect]
     Indication: HIV INFECTION

REACTIONS (4)
  - Immune reconstitution inflammatory syndrome [Unknown]
  - Meningitis cryptococcal [Unknown]
  - Toxoplasmosis [Unknown]
  - Cytomegalovirus chorioretinitis [Unknown]
